FAERS Safety Report 5425630-X (Version None)
Quarter: 2007Q3

REPORT INFORMATION
  Report Type: 
  Country: None (occurrence: None)
  Receive Date: 20070824
  Receipt Date: 20070814
  Transmission Date: 20080115
  Serious: Yes (Death)
  Sender: FDA-Public Use
  Company Number: CH-PFIZER INC-2007067334

PATIENT
  Sex: Female
  Weight: 70 kg

DRUGS (5)
  1. ARTHROTEC [Suspect]
     Indication: RHEUMATOID ARTHRITIS
     Route: 048
     Dates: start: 20051101, end: 20061201
  2. METHOTREXATE [Suspect]
     Indication: RHEUMATOID ARTHRITIS
     Route: 058
     Dates: start: 20051101, end: 20060212
  3. METHOTREXATE [Suspect]
     Route: 058
     Dates: start: 20060213, end: 20061106
  4. METHOTREXATE [Suspect]
     Route: 058
  5. FOLIC ACID [Concomitant]

REACTIONS (3)
  - AGRANULOCYTOSIS [None]
  - HEPATOCELLULAR DAMAGE [None]
  - RENAL FAILURE CHRONIC [None]
